FAERS Safety Report 5308830-9 (Version None)
Quarter: 2007Q2

REPORT INFORMATION
  Report Type: 
  Country: None (occurrence: None)
  Receive Date: 20070426
  Receipt Date: 20070416
  Transmission Date: 20071010
  Serious: Yes (Other)
  Sender: FDA-Public Use
  Company Number: US-PFIZER INC-2007030941

PATIENT
  Sex: Female
  Weight: 70.5 kg

DRUGS (5)
  1. LIPITOR [Suspect]
     Indication: BLOOD CHOLESTEROL INCREASED
     Dates: start: 19970101
  2. ACETYLSALICYLIC ACID SRT [Concomitant]
     Dates: start: 20000101
  3. NIACIN [Concomitant]
     Dates: start: 20020101
  4. VITAMINS [Concomitant]
  5. FISH OIL [Concomitant]
     Dates: start: 20020101

REACTIONS (2)
  - BLOOD CREATINE PHOSPHOKINASE INCREASED [None]
  - MUSCLE INJURY [None]
